FAERS Safety Report 12961250 (Version 3)
Quarter: 2017Q1

REPORT INFORMATION
  Report Type: Spontaneous
  Country: US (occurrence: US)
  Receive Date: 20161121
  Receipt Date: 20170113
  Transmission Date: 20170428
  Serious: No
  Sender: FDA-Public Use
  Company Number: US-PFIZER INC-2016534412

PATIENT
  Age: 62 Year
  Sex: Female

DRUGS (1)
  1. ALPRAZOLAM. [Suspect]
     Active Substance: ALPRAZOLAM
     Indication: ANXIETY
     Dosage: 1 MG, UNK (1 MG, 1 TAB TID-QID)
     Route: 048

REACTIONS (4)
  - Drug hypersensitivity [Not Recovered/Not Resolved]
  - Swelling [Unknown]
  - Anxiety [Unknown]
  - Condition aggravated [Unknown]
